FAERS Safety Report 8176544-6 (Version None)
Quarter: 2012Q1

REPORT INFORMATION
  Report Type: 
  Country: None (occurrence: None)
  Receive Date: 20120301
  Receipt Date: 20120222
  Transmission Date: 20120608
  Serious: Yes (Other)
  Sender: FDA-Public Use
  Company Number: CH-JNJFOC-20120211803

PATIENT
  Age: 33 Year
  Sex: Female

DRUGS (7)
  1. ACTEMRA [Suspect]
     Indication: JUVENILE ARTHRITIS
     Route: 065
     Dates: start: 20111201, end: 20111216
  2. REMICADE [Suspect]
     Indication: JUVENILE ARTHRITIS
     Route: 042
     Dates: start: 20111118, end: 20111118
  3. CALCIMAGON D3 [Concomitant]
     Indication: PRODUCT USED FOR UNKNOWN INDICATION
     Route: 048
  4. ARMODAFINIL [Concomitant]
     Indication: PRODUCT USED FOR UNKNOWN INDICATION
     Route: 048
     Dates: start: 20111130, end: 20111205
  5. BACTRIM [Concomitant]
     Indication: PRODUCT USED FOR UNKNOWN INDICATION
     Route: 048
     Dates: start: 20111130, end: 20111205
  6. PREDNISONE TAB [Concomitant]
     Indication: JUVENILE ARTHRITIS
     Route: 065
     Dates: start: 20111125
  7. ESOMEPRAZOLE SODIUM [Concomitant]
     Indication: PRODUCT USED FOR UNKNOWN INDICATION
     Route: 065

REACTIONS (5)
  - HEPATOCELLULAR INJURY [None]
  - ANAEMIA [None]
  - HEPATIC ENZYME INCREASED [None]
  - CYTOMEGALOVIRUS INFECTION [None]
  - THROMBOCYTOPENIA [None]
